FAERS Safety Report 4730971-5 (Version None)
Quarter: 2005Q3

REPORT INFORMATION
  Report Type: 
  Country: None (occurrence: None)
  Receive Date: 20050719
  Receipt Date: 20040708
  Transmission Date: 20060218
  Serious: Yes (Hospitalization)
  Sender: FDA-Public Use
  Company Number: 201158

PATIENT
  Age: 51 Year
  Sex: Female
  Weight: 90.7194 kg

DRUGS (10)
  1. AVONEX [Suspect]
     Indication: MULTIPLE SCLEROSIS
     Dosage: 30 UG;QW;IM  30 UG;QW;IM
     Route: 030
  2. HUMULIN R [Concomitant]
  3. HUMULIN N [Concomitant]
  4. LEVOXYL [Concomitant]
  5. AMARYL [Concomitant]
  6. COZAAR [Concomitant]
  7. FUROSEMIDE [Concomitant]
  8. KLOR-CON [Concomitant]
  9. GEMFIBROZIL [Concomitant]
  10. ACTOS [Concomitant]

REACTIONS (5)
  - FALL [None]
  - INJECTION SITE HAEMORRHAGE [None]
  - MULTIPLE SCLEROSIS RELAPSE [None]
  - MUSCLE SPASMS [None]
  - NERVOUSNESS [None]
